FAERS Safety Report 8282613-2 (Version None)
Quarter: 2012Q2

REPORT INFORMATION
  Report Type: 
  Country: None (occurrence: None)
  Receive Date: 20120413
  Receipt Date: 20120411
  Transmission Date: 20120825
  Serious: Yes (Other)
  Sender: FDA-Public Use
  Company Number: US-PFIZER INC-2012090737

PATIENT
  Sex: Female
  Weight: 53.515 kg

DRUGS (1)
  1. LIPITOR [Suspect]
     Dosage: DAILY
     Route: 048

REACTIONS (1)
  - ARTHRALGIA [None]
